FAERS Safety Report 9471564 (Version 1)
Quarter: 2013Q3

REPORT INFORMATION
  Report Type: Spontaneous
  Country: US (occurrence: None)
  Receive Date: 20130819
  Receipt Date: 20130819
  Transmission Date: 20140515
  Serious: Yes (Other)
  Sender: FDA-Public Use
  Company Number: 2013SA080962

PATIENT
  Age: 35 Year
  Sex: Female

DRUGS (2)
  1. ICY HOT BACK [Suspect]
  2. ICY HOT ADVANCED RELIEF [Suspect]
     Route: 042

REACTIONS (2)
  - Hypersensitivity [None]
  - Blister [None]
